FAERS Safety Report 17184709 (Version 1)
Quarter: 2019Q4

REPORT INFORMATION
  Report Type: Spontaneous
  Country: US (occurrence: US)
  Receive Date: 20191127
  Receipt Date: 20191127
  Transmission Date: 20200122
  Serious: No
  Sender: FDA-Public Use
  Company Number: None

PATIENT
  Age: 34 Year
  Sex: Female

DRUGS (1)
  1. COPAXONE [Suspect]
     Active Substance: GLATIRAMER ACETATE
     Indication: MULTIPLE SCLEROSIS
     Route: 058
     Dates: start: 201911, end: 20191115

REACTIONS (5)
  - Pain [None]
  - Feeling cold [None]
  - Hyperhidrosis [None]
  - Hypersensitivity [None]
  - Swelling [None]

NARRATIVE: CASE EVENT DATE: 20191115
